FAERS Safety Report 4721433-X (Version None)
Quarter: 2005Q3

REPORT INFORMATION
  Report Type: 
  Country: None (occurrence: None)
  Receive Date: 20050721
  Receipt Date: 20040831
  Transmission Date: 20060218
  Serious: Yes (Hospitalization)
  Sender: FDA-Public Use
  Company Number: US-BRISTOL-MYERS SQUIBB COMPANY-12688479

PATIENT
  Sex: Male

DRUGS (11)
  1. COUMADIN [Suspect]
     Indication: ANTICOAGULANT THERAPY
  2. TYLENOL [Concomitant]
  3. PLAVIX [Concomitant]
  4. LISINOPRIL [Concomitant]
  5. DIGOXIN [Concomitant]
  6. LASIX [Concomitant]
  7. FOLIC ACID [Concomitant]
  8. ZOCOR [Concomitant]
  9. PROTONIX [Concomitant]
  10. ROBITUSSIN DM [Concomitant]
  11. HEPARIN [Concomitant]

REACTIONS (1)
  - INTERNATIONAL NORMALISED RATIO FLUCTUATION [None]
